FAERS Safety Report 10064467 (Version 3)
Quarter: 2015Q1

REPORT INFORMATION
  Report Type: Spontaneous
  Country: US (occurrence: US)
  Receive Date: 20140408
  Receipt Date: 20150206
  Transmission Date: 20150720
  Serious: Yes (Life-Threatening, Hospitalization, Disabling)
  Sender: FDA-Public Use
  Company Number: US-BAYER-2014-051770

PATIENT
  Age: 35 Year
  Sex: Female
  Weight: 82 kg

DRUGS (6)
  1. MIRENA [Suspect]
     Active Substance: LEVONORGESTREL
     Indication: CONTRACEPTION
     Dosage: 20 MCG/24HR, CONT
     Route: 015
     Dates: start: 20060703, end: 20070615
  2. ZOLOFT [Concomitant]
     Active Substance: SERTRALINE HYDROCHLORIDE
     Indication: DEPRESSION
     Dosage: UNK
     Dates: start: 2001
  3. LORAZEPAM. [Concomitant]
     Active Substance: LORAZEPAM
     Dosage: UNK
     Dates: start: 20070604
  4. PERCOCET [Concomitant]
     Active Substance: ACETAMINOPHEN\OXYCODONE HYDROCHLORIDE
     Dosage: UNK
     Dates: start: 20070604
  5. MORPHINE [Concomitant]
     Active Substance: MORPHINE
     Dosage: UNK
     Dates: start: 20070604
  6. ZYRTEC [Concomitant]
     Active Substance: CETIRIZINE HYDROCHLORIDE
     Dosage: UNK
     Dates: start: 20070604

REACTIONS (10)
  - Emotional distress [None]
  - Anhedonia [None]
  - General physical health deterioration [None]
  - Anxiety [None]
  - Uterine perforation [None]
  - Pelvic pain [None]
  - Device issue [None]
  - Balance disorder [None]
  - Abdominal pain lower [None]
  - Injury [None]

NARRATIVE: CASE EVENT DATE: 200706
